FAERS Safety Report 9275984 (Version 1)
Quarter: 2013Q2

REPORT INFORMATION
  Report Type: Spontaneous
  Country: US (occurrence: None)
  Receive Date: 20130502
  Receipt Date: 20130502
  Transmission Date: 20140414
  Serious: No
  Sender: FDA-Public Use
  Company Number: None

PATIENT
  Age: 48 Year
  Sex: Female

DRUGS (5)
  1. QSYMIA [Suspect]
     Indication: OBESITY
     Route: 048
     Dates: start: 201301, end: 201304
  2. LISINOPRIL/HCTZ [Concomitant]
  3. ESCITALOPRAM [Concomitant]
  4. BUPROPION [Concomitant]
  5. CALCIUM/VITAMIN D [Concomitant]

REACTIONS (2)
  - Memory impairment [None]
  - Paraesthesia [None]
